FAERS Safety Report 5077619-0 (Version None)
Quarter: 2006Q3

REPORT INFORMATION
  Report Type: 
  Country: None (occurrence: None)
  Receive Date: 20060810
  Receipt Date: 20060428
  Transmission Date: 20061208
  Serious: No
  Sender: FDA-Public Use
  Company Number: US-GLAXOSMITHKLINE-A0603654A

PATIENT
  Age: 56 Year
  Sex: Female

DRUGS (5)
  1. PAROXETINE HCL [Suspect]
     Indication: PANIC DISORDER
     Dosage: 10MG PER DAY
     Route: 048
     Dates: start: 20050101, end: 20050101
  2. PAXIL [Suspect]
     Indication: PANIC DISORDER
     Dosage: 10MG PER DAY
     Route: 048
     Dates: start: 20050101
  3. FOSAMAX [Concomitant]
  4. OSCAL [Concomitant]
  5. CENTRUM SILVER [Concomitant]

REACTIONS (2)
  - ANXIETY [None]
  - HEART RATE INCREASED [None]
